FAERS Safety Report 18734915 (Version 1)
Quarter: 2021Q1

REPORT INFORMATION
  Report Type: Other
  Country: US (occurrence: US)
  Receive Date: 20210113
  Receipt Date: 20210113
  Transmission Date: 20210419
  Serious: No
  Sender: FDA-Public Use
  Company Number: US-ROCHE-2748603

PATIENT
  Sex: Female

DRUGS (9)
  1. VESICARE [Concomitant]
     Active Substance: SOLIFENACIN SUCCINATE
     Route: 048
  2. AMITRIPTYLINE HCL [Concomitant]
     Active Substance: AMITRIPTYLINE
     Dosage: 1 TAB BY MOUTH DAILY AT NIGHT
     Route: 048
  3. MECLIZINE HCL [Concomitant]
     Active Substance: MECLIZINE HYDROCHLORIDE
     Indication: DIZZINESS
     Dosage: 1 PO EVERY 8 HOURS PRN
     Route: 048
  4. FETZIMA [Concomitant]
     Active Substance: LEVOMILNACIPRAN HYDROCHLORIDE
     Dosage: EVERY OTHER DAY
     Route: 048
  5. SIMVASTATIN. [Concomitant]
     Active Substance: SIMVASTATIN
  6. TEMAZEPAM. [Concomitant]
     Active Substance: TEMAZEPAM
     Dosage: 1 CAP BY MOUTH DAILY AT BEDTIME
     Route: 048
  7. OCREVUS [Suspect]
     Active Substance: OCRELIZUMAB
     Indication: RELAPSING-REMITTING MULTIPLE SCLEROSIS
     Dosage: 300 MG ON DAY 1 AND 15, THEN 600 MG ONCE IN 6 MONTHS
     Route: 042
     Dates: start: 20190718
  8. OMEPRAZOLE. [Concomitant]
     Active Substance: OMEPRAZOLE
  9. WELLBUTRIN XL [Concomitant]
     Active Substance: BUPROPION HYDROCHLORIDE
     Dosage: DAILY
     Route: 048

REACTIONS (1)
  - COVID-19 [Recovered/Resolved]
